FAERS Safety Report 4341988-7 (Version None)
Quarter: 2004Q1

REPORT INFORMATION
  Report Type: 
  Country: None (occurrence: None)
  Receive Date: 20040329
  Receipt Date: 20040105
  Transmission Date: 20041129
  Serious: No
  Sender: FDA-Public Use
  Company Number: 04P-163-0246139-00

PATIENT
  Age: 63 Year
  Sex: Female
  Weight: 33.5662 kg

DRUGS (13)
  1. HUMIRA [Suspect]
     Indication: RHEUMATOID ARTHRITIS
     Dosage: 40 MG, 1 IN 2 WK, SUBCUTANEOUS
     Route: 058
     Dates: start: 20030901
  2. METHOTREXATE [Concomitant]
  3. PREDNISONE [Concomitant]
  4. CELECOXIB [Concomitant]
  5. RISEDRONATE SODIUM [Concomitant]
  6. FOLIC ACID [Concomitant]
  7. PHENYTOIN SODIUM [Concomitant]
  8. ALPRAZOLAM [Concomitant]
  9. DILTIAZEM HYDROCHLORIDE [Concomitant]
  10. ENALAPRIL MALEATE [Concomitant]
  11. ZANAPLEX [Concomitant]
  12. VICODIN [Concomitant]
  13. GABAPENTIN [Concomitant]

REACTIONS (1)
  - DRUG INEFFECTIVE [None]
